FAERS Safety Report 24595743 (Version 1)
Quarter: 2024Q4

REPORT INFORMATION
  Report Type: Spontaneous
  Country: US (occurrence: US)
  Receive Date: 20241109
  Receipt Date: 20241109
  Transmission Date: 20250115
  Serious: Yes (Other)
  Sender: ABBVIE
  Company Number: US-ABBVIE-5989685

PATIENT
  Age: 63 Year
  Sex: Female

DRUGS (1)
  1. SKYRIZI [Suspect]
     Active Substance: RISANKIZUMAB-RZAA
     Indication: Product used for unknown indication
     Route: 058

REACTIONS (5)
  - Abdominal hernia [Recovered/Resolved]
  - Necrosis [Recovered/Resolved]
  - Injection site haemorrhage [Unknown]
  - Pain [Recovered/Resolved]
  - Wound complication [Unknown]

NARRATIVE: CASE EVENT DATE: 20230101
